FAERS Safety Report 11245364 (Version 1)
Quarter: 2015Q3

REPORT INFORMATION
  Report Type: Spontaneous
  Country: AT (occurrence: AT)
  Receive Date: 20150707
  Receipt Date: 20150707
  Transmission Date: 20151125
  Serious: Yes (Other)
  Sender: FDA-Public Use
  Company Number: AT-JNJFOC-20150117536

PATIENT
  Age: 73 Year
  Sex: Female
  Weight: 73.6 kg

DRUGS (36)
  1. RIVOTRIL [Concomitant]
     Active Substance: CLONAZEPAM
     Route: 065
     Dates: start: 20131220, end: 20131221
  2. LEXOTANIL [Concomitant]
     Active Substance: BROMAZEPAM
  3. ELO-MEL [Concomitant]
     Route: 065
     Dates: start: 20140120, end: 20140120
  4. XYZALL [Concomitant]
     Active Substance: LEVOCETIRIZINE DIHYDROCHLORIDE
     Route: 065
     Dates: start: 20140131, end: 20140216
  5. NICOTINE TRANSDERMAL SYSTEM [Concomitant]
     Active Substance: NICOTINE
     Dosage: 21MG/24HR
     Route: 065
     Dates: start: 20131220, end: 20140103
  6. NICOTINE TRANSDERMAL SYSTEM [Concomitant]
     Active Substance: NICOTINE
     Dosage: 15MG/24HR
     Route: 065
     Dates: start: 20140217
  7. SIMVASTATIN. [Concomitant]
     Active Substance: SIMVASTATIN
     Dosage: DOSE:20
     Route: 065
     Dates: start: 2013, end: 20131229
  8. RISPERDAL [Suspect]
     Active Substance: RISPERIDONE
     Indication: PRODUCT USED FOR UNKNOWN INDICATION
     Route: 048
     Dates: start: 20140128, end: 20140128
  9. RISPERDAL [Suspect]
     Active Substance: RISPERIDONE
     Indication: PRODUCT USED FOR UNKNOWN INDICATION
     Route: 048
     Dates: start: 20140115, end: 20140127
  10. NICOTINE TRANSDERMAL SYSTEM [Concomitant]
     Active Substance: NICOTINE
     Dosage: 25MG/24HR
     Route: 065
     Dates: start: 20140104, end: 20140216
  11. QUILONORM RETARD [Suspect]
     Active Substance: LITHIUM CARBONATE
     Indication: PRODUCT USED FOR UNKNOWN INDICATION
     Dosage: DOSE: 900
     Route: 065
     Dates: start: 20140115, end: 20140119
  12. RIVOTRIL [Concomitant]
     Active Substance: CLONAZEPAM
     Route: 065
     Dates: start: 20131222, end: 20131222
  13. MIRTABENE [Suspect]
     Active Substance: MIRTAZAPINE
     Indication: PRODUCT USED FOR UNKNOWN INDICATION
     Route: 065
     Dates: start: 20140123, end: 20140126
  14. MIRTABENE [Suspect]
     Active Substance: MIRTAZAPINE
     Indication: PRODUCT USED FOR UNKNOWN INDICATION
     Route: 065
     Dates: start: 20131220, end: 20131223
  15. QUILONORM RETARD [Suspect]
     Active Substance: LITHIUM CARBONATE
     Indication: PRODUCT USED FOR UNKNOWN INDICATION
     Dosage: DOSE:450
     Route: 065
     Dates: start: 20140123, end: 20140123
  16. QUILONORM RETARD [Suspect]
     Active Substance: LITHIUM CARBONATE
     Indication: PRODUCT USED FOR UNKNOWN INDICATION
     Dosage: DOSE:450
     Route: 065
     Dates: start: 20140113, end: 20140114
  17. LAMICTAL [Suspect]
     Active Substance: LAMOTRIGINE
     Indication: PRODUCT USED FOR UNKNOWN INDICATION
     Dosage: DOSE:300
     Route: 065
     Dates: start: 20140203
  18. PANTOLOC [Suspect]
     Active Substance: PANTOPRAZOLE SODIUM
     Indication: PRODUCT USED FOR UNKNOWN INDICATION
     Dosage: DOSE: 40
     Route: 065
     Dates: start: 2013
  19. RIVOTRIL [Concomitant]
     Active Substance: CLONAZEPAM
     Route: 065
     Dates: start: 20140104, end: 20140106
  20. RIVOTRIL [Concomitant]
     Active Substance: CLONAZEPAM
     Route: 065
     Dates: start: 20140107, end: 20140130
  21. RIVOTRIL [Concomitant]
     Active Substance: CLONAZEPAM
     Route: 065
     Dates: start: 20140219
  22. RIVOTRIL [Concomitant]
     Active Substance: CLONAZEPAM
     Route: 065
     Dates: start: 20131223, end: 20131224
  23. EXELON [Concomitant]
     Active Substance: RIVASTIGMINE TARTRATE
     Dosage: DOSE: 9.5
     Route: 065
     Dates: start: 20131223
  24. DOMINAL FORTE [Concomitant]
     Active Substance: PROTHIPENDYL HYDROCHLORIDE
     Dosage: DOSE: 80
     Dates: start: 20131228, end: 20131229
  25. RISPERDAL [Suspect]
     Active Substance: RISPERIDONE
     Indication: PRODUCT USED FOR UNKNOWN INDICATION
     Route: 048
     Dates: start: 20140114, end: 20140114
  26. RISPERDAL [Suspect]
     Active Substance: RISPERIDONE
     Indication: PRODUCT USED FOR UNKNOWN INDICATION
     Route: 048
     Dates: start: 20140203
  27. CYMBALTA [Interacting]
     Active Substance: DULOXETINE HYDROCHLORIDE
     Indication: PRODUCT USED FOR UNKNOWN INDICATION
     Dosage: DOSE: 90
     Route: 065
     Dates: start: 201311
  28. DOMINAL FORTE [Concomitant]
     Active Substance: PROTHIPENDYL HYDROCHLORIDE
     Dosage: DOSE 40
     Dates: start: 20131230, end: 20140106
  29. MIRTABENE [Suspect]
     Active Substance: MIRTAZAPINE
     Indication: PRODUCT USED FOR UNKNOWN INDICATION
     Route: 065
     Dates: start: 20131224, end: 20140122
  30. CONCOR [Concomitant]
     Active Substance: BISOPROLOL FUMARATE
     Indication: PRODUCT USED FOR UNKNOWN INDICATION
     Dosage: DOSE: 2.5
     Route: 065
     Dates: start: 2013
  31. EXELON [Concomitant]
     Active Substance: RIVASTIGMINE TARTRATE
     Dosage: DOSE: 4.6
     Route: 065
     Dates: start: 20131220, end: 20131222
  32. OLEOVIT [Concomitant]
     Route: 065
     Dates: start: 2013
  33. SIMVASTATIN. [Concomitant]
     Active Substance: SIMVASTATIN
     Dosage: 40: DOSE
     Route: 065
     Dates: start: 20131230
  34. MIRTABENE [Suspect]
     Active Substance: MIRTAZAPINE
     Indication: PRODUCT USED FOR UNKNOWN INDICATION
     Route: 065
     Dates: start: 20140203, end: 20140206
  35. QUILONORM RETARD [Suspect]
     Active Substance: LITHIUM CARBONATE
     Indication: PRODUCT USED FOR UNKNOWN INDICATION
     Dosage: DOSE :225
     Route: 065
     Dates: start: 20140122, end: 20140122
  36. LAMICTAL [Suspect]
     Active Substance: LAMOTRIGINE
     Indication: PRODUCT USED FOR UNKNOWN INDICATION
     Dosage: DOSE: 200
     Route: 065
     Dates: start: 201311, end: 20140202

REACTIONS (2)
  - Oedema peripheral [Recovered/Resolved]
  - Drug interaction [Recovered/Resolved]

NARRATIVE: CASE EVENT DATE: 20140122
